FAERS Safety Report 8489622-9 (Version None)
Quarter: 2012Q3

REPORT INFORMATION
  Report Type: 
  Country: None (occurrence: None)
  Receive Date: 20120705
  Receipt Date: 20120626
  Transmission Date: 20120928
  Serious: Yes (Other)
  Sender: FDA-Public Use
  Company Number: US-JNJFOC-20120516345

PATIENT
  Sex: Female

DRUGS (4)
  1. VITAMIN [Concomitant]
     Indication: PRODUCT USED FOR UNKNOWN INDICATION
     Route: 065
  2. PHENOBARBITAL TAB [Suspect]
     Indication: CONVULSION
     Route: 065
  3. NEURONTIN [Suspect]
     Indication: CONVULSION
     Route: 065
  4. TOPAMAX [Suspect]
     Indication: EPILEPSY
     Route: 065
     Dates: start: 20060714, end: 20060814

REACTIONS (4)
  - MATERNAL EXPOSURE DURING PREGNANCY [None]
  - PREMATURE DELIVERY [None]
  - EMOTIONAL DISORDER [None]
  - POLYHYDRAMNIOS [None]
